FAERS Safety Report 9157403 (Version 1)
Quarter: 2013Q1

REPORT INFORMATION
  Report Type: Spontaneous
  Country: US (occurrence: None)
  Receive Date: 20130108
  Receipt Date: 20130108
  Transmission Date: 20140127
  Serious: No
  Sender: FDA-Public Use
  Company Number: None

PATIENT
  Sex: Female
  Weight: 86.18 kg

DRUGS (1)
  1. ESCITALOPRAM 20MG [Suspect]
     Indication: DEPRESSION
     Dosage: 20MG DAILY BY MOUTH
     Route: 048
     Dates: start: 200103

REACTIONS (2)
  - Panic attack [None]
  - Product substitution issue [None]
